FAERS Safety Report 15370004 (Version 5)
Quarter: 2018Q4

REPORT INFORMATION
  Report Type: Spontaneous
  Country: US (occurrence: US)
  Receive Date: 20180911
  Receipt Date: 20181019
  Transmission Date: 20190204
  Serious: Yes (Hospitalization, Other)
  Sender: FDA-Public Use
  Company Number: US-AMGEN-USASP2013040156

PATIENT
  Age: 0 Day
  Sex: Male
  Weight: 25.17 kg

DRUGS (3)
  1. FOLIC ACID. [Concomitant]
     Active Substance: FOLIC ACID
     Indication: MATERNAL EXPOSURE DURING BREAST FEEDING
     Dosage: UNK UNK, QD
     Route: 063
  2. ENBREL [Suspect]
     Active Substance: ETANERCEPT
     Indication: MATERNAL EXPOSURE DURING BREAST FEEDING
     Dosage: 50 MG, QWK
     Route: 063
  3. SYNTHROID [Concomitant]
     Active Substance: LEVOTHYROXINE SODIUM
     Indication: MATERNAL EXPOSURE DURING BREAST FEEDING
     Dosage: UNK UNK, QD
     Route: 063

REACTIONS (2)
  - Maternal exposure during breast feeding [Recovered/Resolved]
  - Respiratory disorder neonatal [Recovered/Resolved]

NARRATIVE: CASE EVENT DATE: 20120927
